FAERS Safety Report 23023303 (Version 1)
Quarter: 2023Q4

REPORT INFORMATION
  Report Type: Spontaneous
  Country: DE (occurrence: DE)
  Receive Date: 20231003
  Receipt Date: 20231003
  Transmission Date: 20240110
  Serious: Yes (Hospitalization, Other)
  Sender: FDA-Public Use
  Company Number: DE-GLAXOSMITHKLINE-DE2023GSK128033

PATIENT
  Age: 45 Year
  Sex: Male

DRUGS (1)
  1. ALBUTEROL [Suspect]
     Active Substance: ALBUTEROL
     Indication: Chronic obstructive pulmonary disease
     Dosage: UNK
     Route: 055

REACTIONS (7)
  - Foreign body aspiration [Recovered/Resolved]
  - Respiratory distress [Recovered/Resolved]
  - Condition aggravated [Recovered/Resolved]
  - Haemoptysis [Recovered/Resolved]
  - Wheezing [Recovered/Resolved]
  - Sputum discoloured [Recovered/Resolved]
  - Device use issue [Unknown]
